FAERS Safety Report 8473071-3 (Version None)
Quarter: 2012Q2

REPORT INFORMATION
  Report Type: 
  Country: None (occurrence: None)
  Receive Date: 20120627
  Receipt Date: 20120620
  Transmission Date: 20120825
  Serious: Yes (Hospitalization, Other)
  Sender: FDA-Public Use
  Company Number: JP-ROCHE-1036339

PATIENT
  Sex: Female
  Weight: 47 kg

DRUGS (21)
  1. RANIBIZUMAB [Suspect]
     Dosage: LEFT EYE
     Route: 050
     Dates: start: 20120106
  2. RANIBIZUMAB [Suspect]
     Dosage: RIGHT EYE
     Route: 050
     Dates: start: 20120514
  3. INDAPAMIDE [Suspect]
     Indication: PRODUCT USED FOR UNKNOWN INDICATION
     Route: 048
     Dates: end: 20120124
  4. LANSOPRAZOLE [Concomitant]
  5. DEPAS [Concomitant]
  6. RANIBIZUMAB [Suspect]
     Indication: AGE-RELATED MACULAR DEGENERATION
     Dosage: LEFT EYE
     Route: 050
     Dates: start: 20111206
  7. RANIBIZUMAB [Suspect]
     Dosage: RIGHT EYE
     Route: 050
     Dates: start: 20120313
  8. OLMETEC [Concomitant]
  9. CARVEDILOL [Concomitant]
  10. DOXAZOSIN MESYLATE [Concomitant]
  11. GASTROM [Concomitant]
  12. VISUDYNE [Concomitant]
     Indication: AGE-RELATED MACULAR DEGENERATION
     Route: 042
     Dates: start: 20070901
  13. CRAVIT [Concomitant]
     Dates: start: 20111201, end: 20120101
  14. INDAPAMIDE [Concomitant]
  15. ZETIA [Concomitant]
  16. GASMOTIN [Concomitant]
  17. TRICOR [Concomitant]
  18. PRIMPERAN (JAPAN) [Concomitant]
     Dates: start: 20120124, end: 20120124
  19. SITAGLIPTIN PHOSPHATE [Concomitant]
  20. RANIBIZUMAB [Suspect]
     Dosage: RIGHT EYE
     Route: 050
     Dates: start: 20120113
  21. RANIBIZUMAB [Suspect]
     Dosage: RIGHT EYE
     Route: 050
     Dates: start: 20120409

REACTIONS (3)
  - INAPPROPRIATE SCHEDULE OF DRUG ADMINISTRATION [None]
  - INAPPROPRIATE ANTIDIURETIC HORMONE SECRETION [None]
  - HYPONATRAEMIA [None]
